FAERS Safety Report 4871733-8 (Version None)
Quarter: 2006Q1

REPORT INFORMATION
  Report Type: 
  Country: None (occurrence: None)
  Receive Date: 20060104
  Receipt Date: 20050217
  Transmission Date: 20060701
  Serious: No
  Sender: FDA-Public Use
  Company Number: US-BRISTOL-MYERS SQUIBB COMPANY-12866422

PATIENT
  Sex: Male
  Weight: 59 kg

DRUGS (4)
  1. DESYREL [Suspect]
     Indication: INSOMNIA
     Route: 048
     Dates: start: 20040101
  2. TOPROL-XL [Concomitant]
  3. ZOLOFT [Concomitant]
  4. TAPAZOLE [Concomitant]

REACTIONS (1)
  - COUGH [None]
